FAERS Safety Report 6312555-0 (Version None)
Quarter: 2009Q3

REPORT INFORMATION
  Report Type: 
  Country: None (occurrence: None)
  Receive Date: 20090817
  Receipt Date: 20090526
  Transmission Date: 20100115
  Serious: No
  Sender: FDA-Public Use
  Company Number: US-ALLERGAN-0907263US

PATIENT
  Age: 67 Year
  Sex: Male

DRUGS (5)
  1. SANCTURA XR [Suspect]
     Indication: HYPERTONIC BLADDER
     Dosage: UNK, UNKNOWN
     Route: 048
     Dates: start: 20081201, end: 20090301
  2. STALEVO 100 [Concomitant]
     Dosage: 50 MG, QID
  3. CARBIDOPA-LEVODOPA [Concomitant]
     Dosage: 25/100, QID
  4. REQUIP [Concomitant]
     Dosage: UNK, QID
  5. METFORMIN [Concomitant]
     Dosage: UNK, TID

REACTIONS (1)
  - VISION BLURRED [None]
